FAERS Safety Report 14505969 (Version 2)
Quarter: 2018Q1

REPORT INFORMATION
  Report Type: Spontaneous
  Country: US (occurrence: US)
  Receive Date: 20180208
  Receipt Date: 20180224
  Transmission Date: 20180509
  Serious: Yes (Hospitalization, Other)
  Sender: FDA-Public Use
  Company Number: US-TEVA-2018-US-855746

PATIENT
  Age: 46 Year
  Sex: Female

DRUGS (2)
  1. HYDROXYCHLOROQUINE [Interacting]
     Active Substance: HYDROXYCHLOROQUINE
     Dosage: FOUR 200 MG TABLETS
     Route: 048
  2. ONDANSETRON [Suspect]
     Active Substance: ONDANSETRON
     Route: 042

REACTIONS (9)
  - Hypotension [Not Recovered/Not Resolved]
  - Sinus tachycardia [Recovered/Resolved]
  - Ventricular tachycardia [Recovered/Resolved]
  - Torsade de pointes [Recovered/Resolved]
  - Hypokalaemia [Unknown]
  - Ventricular arrhythmia [Recovered/Resolved]
  - Drug interaction [Recovering/Resolving]
  - Electrocardiogram QT prolonged [Unknown]
  - Toxicity to various agents [Recovering/Resolving]
